FAERS Safety Report 5798753-3 (Version None)
Quarter: 2008Q3

REPORT INFORMATION
  Report Type: 
  Country: None (occurrence: None)
  Receive Date: 20080702
  Receipt Date: 20080626
  Transmission Date: 20090109
  Serious: Yes (Other)
  Sender: FDA-Public Use
  Company Number: US-AMGEN-US282906

PATIENT
  Sex: Female

DRUGS (9)
  1. ENBREL [Suspect]
     Indication: RHEUMATOID ARTHRITIS
     Route: 058
     Dates: start: 20021216
  2. METHOTREXATE [Suspect]
     Route: 048
     Dates: start: 20020606
  3. PREDNISONE 50MG TAB [Suspect]
     Route: 048
  4. FOLIC ACID [Concomitant]
     Route: 065
     Dates: start: 20020606
  5. ASPIRIN [Concomitant]
     Route: 065
  6. DIGOXIN [Concomitant]
     Route: 065
  7. LEVOXYL [Concomitant]
     Route: 065
  8. PONSTAN [Concomitant]
     Route: 065
  9. VERAPAMIL [Concomitant]
     Route: 065

REACTIONS (2)
  - PERIPHERAL VASCULAR DISORDER [None]
  - SKIN ULCER [None]
